FAERS Safety Report 24763237 (Version 1)
Quarter: 2024Q4

REPORT INFORMATION
  Report Type: Spontaneous
  Country: JP (occurrence: JP)
  Receive Date: 20241222
  Receipt Date: 20241222
  Transmission Date: 20250115
  Serious: Yes (Death)
  Sender: SANDOZ
  Company Number: JP-SANDOZ-SDZ2024JP103937

PATIENT
  Age: 46 Year
  Sex: Male

DRUGS (21)
  1. ALKERAN [Suspect]
     Active Substance: MELPHALAN
     Indication: Acute myeloid leukaemia
     Dosage: 100 MG/M2, DAY-2
     Route: 041
  2. AZACITIDINE [Suspect]
     Active Substance: AZACITIDINE
     Indication: Acute myeloid leukaemia
     Dosage: 75 MG/ M2 FOR 7 DAYS
     Route: 042
  3. CASPOFUNGIN ACETATE [Suspect]
     Active Substance: CASPOFUNGIN ACETATE
     Indication: Infection prophylaxis
     Dosage: 50 MG ON DAYS-34 TO-21 AND-9 TO-8
     Route: 065
  4. CYCLOPHOSPHAMIDE [Suspect]
     Active Substance: CYCLOPHOSPHAMIDE
     Indication: Prophylaxis against graft versus host disease
     Dosage: 50 MG / KG / DAY IV ON DAYS 3 AND 4
     Route: 042
  5. CYTARABINE [Suspect]
     Active Substance: CYTARABINE
     Dosage: 40 MG, FOUR CYCLES
     Route: 050
  6. CYTARABINE [Suspect]
     Active Substance: CYTARABINE
     Dosage: 100 MG/ M2 IV FOR 7 DAYS
     Route: 042
  7. CYTARABINE [Suspect]
     Active Substance: CYTARABINE
     Indication: Acute myeloid leukaemia
     Dosage: 2 G / M2 IV FOR 5 DAYS
     Route: 042
  8. CYTARABINE [Suspect]
     Active Substance: CYTARABINE
     Dosage: 4 G / M2 IV ON DAYS-8 AND-7
     Route: 041
  9. DECADRON (DEXAMETHASONE SODIUM PHOSPHATE) [Suspect]
     Active Substance: DEXAMETHASONE SODIUM PHOSPHATE
     Indication: Product used for unknown indication
     Dosage: 3.3 MG, FOUR CYCLES
     Route: 050
  10. ETOPOSIDE [Suspect]
     Active Substance: ETOPOSIDE
     Indication: Acute myeloid leukaemia
     Dosage: 100 MG / M2 IV FOR 5 DAYS
     Route: 042
  11. FLUDARABINE PHOSPHATE [Suspect]
     Active Substance: FLUDARABINE PHOSPHATE
     Indication: Acute myeloid leukaemia
     Dosage: 21.6 MG/ M2 IV FOR 5 DAYS
     Route: 042
  12. FLUDARABINE PHOSPHATE [Suspect]
     Active Substance: FLUDARABINE PHOSPHATE
     Dosage: 30 MG/ M2 IV ON DAYS-8 TO-3
     Route: 041
  13. MICAFUNGIN SODIUM [Suspect]
     Active Substance: MICAFUNGIN SODIUM
     Indication: Infection prophylaxis
     Dosage: 150 MG ON DAYS-66 TO-35 AND-20 TO-16
     Route: 065
  14. IDARUBICIN HYDROCHLORIDE [Suspect]
     Active Substance: IDARUBICIN HYDROCHLORIDE
     Indication: Acute myeloid leukaemia
     Dosage: 10 MG / M2 IV FOR 3 DAYS
     Route: 042
  15. METHOTREXATE [Suspect]
     Active Substance: METHOTREXATE
     Indication: Product used for unknown indication
     Dosage: 15 MG, FOUR CYCLES
     Route: 050
  16. METHYLPREDNISOLONE [Suspect]
     Active Substance: METHYLPREDNISOLONE
     Indication: Acute graft versus host disease in skin
     Dosage: 1 MG/KG
     Route: 042
  17. MYCOPHENOLATE MOFETIL [Suspect]
     Active Substance: MYCOPHENOLATE MOFETIL
     Indication: Prophylaxis against graft versus host disease
     Dosage: STARTING ON DAY 5
     Route: 048
  18. TACROLIMUS [Suspect]
     Active Substance: TACROLIMUS
     Indication: Prophylaxis against graft versus host disease
     Dosage: UNK
     Route: 042
  19. VENETOCLAX [Suspect]
     Active Substance: VENETOCLAX
     Indication: Acute myeloid leukaemia
     Dosage: 400 MG DAILY FOR 14 DAYS
     Route: 048
  20. VINCRISTINE SULFATE [Suspect]
     Active Substance: VINCRISTINE SULFATE
     Indication: Acute myeloid leukaemia
     Dosage: 0.8 MG / M2 IV FOR 1 DAY
     Route: 042
  21. VINDESINE SULFATE [Suspect]
     Active Substance: VINDESINE SULFATE
     Indication: Acute myeloid leukaemia
     Dosage: 6 MG/ M2 IV FOR 1 DAY
     Route: 042

REACTIONS (2)
  - Fungal infection [Fatal]
  - Drug resistance [Unknown]
